FAERS Safety Report 6707392-9 (Version None)
Quarter: 2010Q2

REPORT INFORMATION
  Report Type: 
  Country: None (occurrence: None)
  Receive Date: 20100503
  Receipt Date: 20091119
  Transmission Date: 20101027
  Serious: No
  Sender: FDA-Public Use
  Company Number: US-ASTRAZENECA-2009SE27598

PATIENT
  Sex: Female

DRUGS (4)
  1. NEXIUM [Suspect]
     Indication: GASTROOESOPHAGEAL REFLUX DISEASE
     Route: 048
     Dates: start: 20090901, end: 20090901
  2. MUCINEX [Concomitant]
     Indication: NASOPHARYNGITIS
  3. WELLBUTRIN [Concomitant]
  4. ZONEGRAN [Concomitant]
     Indication: ARTHRALGIA

REACTIONS (3)
  - COUGH [None]
  - NASOPHARYNGITIS [None]
  - RETCHING [None]
